FAERS Safety Report 17005554 (Version 1)
Quarter: 2019Q4

REPORT INFORMATION
  Report Type: Spontaneous
  Country: US (occurrence: US)
  Receive Date: 20190926
  Receipt Date: 20190926
  Transmission Date: 20200122
  Serious: Yes (Hospitalization)
  Sender: FDA-Public Use
  Company Number: None

PATIENT
  Age: 30 Year
  Sex: Female
  Weight: 122.02 kg

DRUGS (2)
  1. PREGABALIN 150MG [Suspect]
     Active Substance: PREGABALIN
     Indication: TRIGEMINAL NEURALGIA
     Route: 048
     Dates: start: 20190828
  2. PREGABALIN 150MG [Suspect]
     Active Substance: PREGABALIN
     Indication: FACIAL PARALYSIS
     Route: 048
     Dates: start: 20190828

REACTIONS (5)
  - Sensation of foreign body [None]
  - Dyspnoea [None]
  - Product substitution issue [None]
  - Throat tightness [None]
  - Anxiety [None]

NARRATIVE: CASE EVENT DATE: 20190904
